FAERS Safety Report 4437228-0 (Version None)
Quarter: 2004Q3

REPORT INFORMATION
  Report Type: 
  Country: None (occurrence: None)
  Receive Date: 20040827
  Receipt Date: 20040811
  Transmission Date: 20050211
  Serious: Yes (Hospitalization)
  Sender: FDA-Public Use
  Company Number: K200401242

PATIENT
  Age: 72 Year
  Sex: Female
  Weight: 81.6 kg

DRUGS (2)
  1. TAPAZOLE TABLETS (METHIMAZOLE) TABLET, 30 MG [Suspect]
     Indication: THYROTOXIC CRISIS
     Dosage: 30 MG, Q 8 HOUR, ORAL
     Route: 048
     Dates: start: 20040729, end: 20040810
  2. HYPERTENSION MEDICATION [Concomitant]

REACTIONS (4)
  - CANDIDURIA [None]
  - ENTEROCOCCAL SEPSIS [None]
  - PSEUDOMONAS INFECTION [None]
  - THROMBOCYTOPENIA [None]
